FAERS Safety Report 10641072 (Version 2)
Quarter: 2014Q4

REPORT INFORMATION
  Report Type: Spontaneous
  Country: ES (occurrence: ES)
  Receive Date: 20141209
  Receipt Date: 20141230
  Transmission Date: 20150529
  Serious: Yes (Death, Other)
  Sender: FDA-Public Use
  Company Number: ES-CELGENE-ESP-2014120846

PATIENT
  Sex: Female

DRUGS (4)
  1. ABRAXANE [Suspect]
     Active Substance: PACLITAXEL
     Indication: BREAST CANCER
     Route: 041
     Dates: start: 200804, end: 200807
  2. RIVOTRIL [Concomitant]
     Active Substance: CLONAZEPAM
     Indication: EPILEPSY
     Route: 065
  3. ABRAXANE [Suspect]
     Active Substance: PACLITAXEL
     Route: 041
  4. DEPAKINE [Concomitant]
     Active Substance: VALPROATE SODIUM
     Indication: EPILEPSY
     Route: 065

REACTIONS (9)
  - Pericardial effusion [Unknown]
  - Neutropenia [Unknown]
  - Pleural effusion [Unknown]
  - Metastases to skin [Unknown]
  - Alopecia [Unknown]
  - Pleural effusion [Unknown]
  - Pericardial effusion [Unknown]
  - Neurotoxicity [Recovered/Resolved]
  - Death [Fatal]

NARRATIVE: CASE EVENT DATE: 201303
